FAERS Safety Report 9156766 (Version 4)
Quarter: 2013Q2

REPORT INFORMATION
  Report Type: Spontaneous
  Country: US (occurrence: US)
  Receive Date: 20130312
  Receipt Date: 20130426
  Transmission Date: 20140414
  Serious: Yes (Other)
  Sender: FDA-Public Use
  Company Number: US-BAYER-2013-028026

PATIENT
  Age: 34 Year
  Sex: Female
  Weight: 53.06 kg

DRUGS (1)
  1. MIRENA [Suspect]
     Indication: CONTRACEPTION
     Dosage: 20 MCG/24HR, CONT
     Route: 015
     Dates: start: 20120914, end: 20130220

REACTIONS (4)
  - Complication of device removal [Recovering/Resolving]
  - Device dislocation [Recovering/Resolving]
  - Device breakage [Recovering/Resolving]
  - Procedural pain [Recovering/Resolving]
